FAERS Safety Report 12166540 (Version 2)
Quarter: 2016Q2

REPORT INFORMATION
  Report Type: Report from Study
  Country: US (occurrence: US)
  Receive Date: 20160309
  Receipt Date: 20160613
  Transmission Date: 20160815
  Serious: Yes (Hospitalization, Other)
  Sender: FDA-Public Use
  Company Number: US-AMGEN-USASL2016018343

PATIENT
  Age: 57 Year
  Sex: Male

DRUGS (2)
  1. KYPROLIS [Suspect]
     Active Substance: CARFILZOMIB
     Indication: PLASMA CELL MYELOMA
     Dosage: UNK UNK, 2 TIMES/WK
     Route: 065
     Dates: start: 201603
  2. CYCLOPHOSPHAMIDE. [Concomitant]
     Active Substance: CYCLOPHOSPHAMIDE
     Dosage: 50 MG, QD
     Dates: start: 20160601

REACTIONS (13)
  - Feeling abnormal [Unknown]
  - Diarrhoea [Recovered/Resolved]
  - Pancreatitis [Unknown]
  - Tremor [Unknown]
  - Headache [Unknown]
  - Nervousness [Unknown]
  - Fluid replacement [Unknown]
  - Off label use [Unknown]
  - Malaise [Unknown]
  - Dyspnoea [Unknown]
  - Infusion site extravasation [Unknown]
  - Constipation [Unknown]
  - Poor venous access [Unknown]

NARRATIVE: CASE EVENT DATE: 2016
